FAERS Safety Report 5451525-1 (Version None)
Quarter: 2007Q3

REPORT INFORMATION
  Report Type: 
  Country: None (occurrence: None)
  Receive Date: 20070913
  Receipt Date: 20070910
  Transmission Date: 20080115
  Serious: Yes (Other)
  Sender: FDA-Public Use
  Company Number: US-JNJFOC-20070901808

PATIENT
  Age: 77 Year
  Sex: Female
  Weight: 56.7 kg

DRUGS (3)
  1. EXTRA STRENGTH TYLENOL [Suspect]
     Route: 048
  2. EXTRA STRENGTH TYLENOL [Suspect]
     Indication: ARTHRALGIA
     Route: 048
  3. FENTANYL [Concomitant]
     Indication: ARTHRITIS

REACTIONS (1)
  - HAEMATOCHEZIA [None]
